FAERS Safety Report 26180636 (Version 1)
Quarter: 2025Q4

REPORT INFORMATION
  Report Type: Spontaneous
  Country: US (occurrence: None)
  Receive Date: 20251219
  Receipt Date: 20251219
  Transmission Date: 20260117
  Serious: Yes (Other)
  Sender: UCB
  Company Number: US-UCBSA-2025079674

PATIENT
  Age: 5 Month
  Weight: 43.95 kg

DRUGS (32)
  1. KEPPRA [Suspect]
     Active Substance: LEVETIRACETAM
     Indication: Partial seizures
     Dosage: UNK
  2. KEPPRA [Suspect]
     Active Substance: LEVETIRACETAM
     Dosage: UNK
  3. NAYZILAM [Concomitant]
     Active Substance: MIDAZOLAM
     Indication: Product used for unknown indication
     Dosage: 5 MG/0.1 ML
  4. FINTEPLA [Concomitant]
     Active Substance: FENFLURAMINE
     Indication: Lennox-Gastaut syndrome
     Dosage: 12.54 MILLIGRAM, ONCE DAILY (QD) (342, TAKE 5.7 ML BY MOUTH OR VIA G-TUBE IN THE MORNING AND IN THE EVENING)
     Route: 061
  5. FINTEPLA [Concomitant]
     Active Substance: FENFLURAMINE
     Dosage: 5.7 MILLIGRAM, 2X/DAY (BID)
     Route: 061
  6. FINTEPLA [Concomitant]
     Active Substance: FENFLURAMINE
     Dosage: 5.7 MILLIGRAM, 2X/DAY (BID)
     Route: 061
  7. VIGABATRIN [Concomitant]
     Active Substance: VIGABATRIN
     Dosage: UNK
  8. SABRIL [Concomitant]
     Active Substance: VIGABATRIN
     Dosage: UNK
  9. FELBAMATE [Concomitant]
     Active Substance: FELBAMATE
     Dosage: 6 ML IN AM, 5 MLAT NOON AND 3.5 MLIN PM
  10. FELBAMATE [Concomitant]
     Active Substance: FELBAMATE
     Dosage: UNK
  11. FELBAMATE [Concomitant]
     Active Substance: FELBAMATE
     Dosage: UNK
  12. DEPAKOTE [Concomitant]
     Active Substance: DIVALPROEX SODIUM
     Dosage: UNK
  13. PHENOBARBITAL [Concomitant]
     Active Substance: PHENOBARBITAL
     Indication: Partial seizures
     Dosage: UNK
  14. PHENOBARBITAL [Concomitant]
     Active Substance: PHENOBARBITAL
     Dosage: 32 MILLIGRAM, 2X/DAY (BID)
  15. PHENOBARBITAL [Concomitant]
     Active Substance: PHENOBARBITAL
     Dosage: 1 MILLIGRAM, WEEKLY (QW), 1 ML/DAY/WEEK
  16. PHENOBARBITAL [Concomitant]
     Active Substance: PHENOBARBITAL
     Dosage: UNK
  17. PHENOBARBITAL [Concomitant]
     Active Substance: PHENOBARBITAL
     Dosage: UNK
  18. PHENOBARBITAL [Concomitant]
     Active Substance: PHENOBARBITAL
     Dosage: UNK
  19. ZONISAMIDE [Concomitant]
     Active Substance: ZONISAMIDE
     Dosage: UNK
  20. ONFI [Concomitant]
     Active Substance: CLOBAZAM
     Dosage: 8 MILLILITER, 2X/DAY (BID)
     Route: 061
  21. ONFI [Concomitant]
     Active Substance: CLOBAZAM
     Dosage: 8 MILLILITER, 2X/DAY (BID)
     Route: 061
  22. LAMICTAL [Concomitant]
     Active Substance: LAMOTRIGINE
     Dosage: TAKE 3.5 TABLETS BY MOUTH IN THE MORNING AND 3.5 TABLETS IN THE EVENING.
     Route: 061
  23. LAMICTAL [Concomitant]
     Active Substance: LAMOTRIGINE
     Dosage: 2 DOSAGE FORM, PER TITRATION SCHEDULE TO TARGET DOSE OF 2 LB TWICE DAILY ( ALONG WITH 100 MG TB FOR TARGET DOSE OL 350 MG TWICE DAILY).
     Route: 061
  24. EPIDIOLEX [Concomitant]
     Active Substance: CANNABIDIOL
     Dosage: UNK
  25. EPIDIOLEX [Concomitant]
     Active Substance: CANNABIDIOL
     Dosage: 3.5 MILLILITER, 2X/DAY (BID)
  26. ALBUTEROL SULFATE [Concomitant]
     Active Substance: ALBUTEROL SULFATE
     Indication: Dyspnoea
     Dosage: INHALE 2 PUFFS INTO THE LUNGS EVERY 4 HOURS AS NEEDED
  27. ALBUTEROL SULFATE [Concomitant]
     Active Substance: ALBUTEROL SULFATE
     Indication: Wheezing
  28. GLYCOPYRROLATE [Concomitant]
     Active Substance: GLYCOPYRROLATE
     Dosage: 5 MILLILITER, 2X/DAY (BID), TAKE 5 MLS BY MOUTH 2 TIMES DAILY. 8 ML TWICE DAILY
     Route: 061
  29. LAMOTRIGINE [Concomitant]
     Active Substance: LAMOTRIGINE
     Dosage: 350 MILLIGRAM, 2X/DAY (BID)
  30. LAMOTRIGINE [Concomitant]
     Active Substance: LAMOTRIGINE
     Dosage: 300 MILLIGRAM, 2X/DAY (BID)
  31. LAMOTRIGINE [Concomitant]
     Active Substance: LAMOTRIGINE
     Dosage: 350 MILLIGRAM, 2X/DAY (BID)
  32. ZONISAMIDE [Concomitant]
     Active Substance: ZONISAMIDE
     Dosage: 3 MONTHS

REACTIONS (23)
  - Infantile spasms [Unknown]
  - Urinary retention [Unknown]
  - Developmental hip dysplasia [Unknown]
  - Cerebral palsy [Unknown]
  - Hydrocephalus [Unknown]
  - Seizure [Unknown]
  - Pneumonia aspiration [Unknown]
  - Fall [Unknown]
  - Hypokinesia [Unknown]
  - Wheelchair user [Unknown]
  - Anal incontinence [Unknown]
  - Muscular weakness [Unknown]
  - Hypotonia [Unknown]
  - Developmental delay [Unknown]
  - Urinary incontinence [Unknown]
  - Brain operation [Unknown]
  - Poor feeding infant [Unknown]
  - Feeding tube user [Unknown]
  - Diarrhoea [Unknown]
  - Vagal nerve stimulator implantation [Unknown]
  - Aphasia [Unknown]
  - Osteopenia [Unknown]
  - Constipation [Unknown]
